FAERS Safety Report 9192725 (Version 1)
Quarter: 2013Q1

REPORT INFORMATION
  Report Type: Spontaneous
  Country: US (occurrence: None)
  Receive Date: 20130325
  Receipt Date: 20130325
  Transmission Date: 20140127
  Serious: Yes (Hospitalization)
  Sender: FDA-Public Use
  Company Number: 2013AP003664

PATIENT
  Age: 89 Year
  Sex: Male

DRUGS (11)
  1. LEVOFLOXACIN (LEVOFLOXACIN) [Suspect]
     Indication: CHRONIC OBSTRUCTIVE PULMONARY DISEASE
     Route: 048
     Dates: start: 20130211, end: 20130220
  2. FLUIMUCIL [Suspect]
     Route: 048
     Dates: start: 20130215, end: 20130220
  3. WARFARIN SODIUM (WARFARIN SODIUM) [Suspect]
     Indication: ATRIAL FIBRILLATION
     Route: 048
     Dates: start: 20080101, end: 20130220
  4. PANTECTA [Concomitant]
  5. LASIX/00032601/(FUROSEMIDE) [Concomitant]
  6. SPIRIVA (TIOTROPIUM BROMIDE) [Concomitant]
  7. PRADIF (TAMSULOSIN HYDROCHLORIDE) [Concomitant]
  8. ZYLORIC (ALLOPURINOL) [Concomitant]
  9. HUMULIN R (INSULIN HUMAN) [Concomitant]
  10. DILTIAZEM [Concomitant]
  11. OXIVENT (OXITROPIUM BROMIDE) [Concomitant]

REACTIONS (1)
  - Abdominal wall haematoma [None]
